FAERS Safety Report 8252038-4 (Version None)
Quarter: 2012Q2

REPORT INFORMATION
  Report Type: 
  Country: None (occurrence: None)
  Receive Date: 20120402
  Receipt Date: 20110308
  Transmission Date: 20120825
  Serious: No
  Sender: FDA-Public Use
  Company Number: US-ABBOTT-11P-163-0804268-00

PATIENT
  Sex: Male
  Weight: 100.45 kg

DRUGS (3)
  1. TESTOSTERONE [Suspect]
     Indication: LIBIDO DECREASED
  2. TESTOSTERONE [Suspect]
     Indication: ERECTILE DYSFUNCTION
  3. TESTOSTERONE [Suspect]
     Indication: HYPOGONADISM
     Dosage: DAILY DOSE: 15 GRAM(S) VIA PUMP
     Route: 062
     Dates: start: 20100712, end: 20100903

REACTIONS (1)
  - CHEST PAIN [None]
